FAERS Safety Report 8571204-1 (Version None)
Quarter: 2012Q3

REPORT INFORMATION
  Report Type: 
  Country: None (occurrence: None)
  Receive Date: 20120806
  Receipt Date: 20120725
  Transmission Date: 20120928
  Serious: Yes (Life-Threatening, Hospitalization, Other)
  Sender: FDA-Public Use
  Company Number: GR-009507513-1207GRC012445

PATIENT

DRUGS (1)
  1. PUREGON [Suspect]
     Dosage: UNK

REACTIONS (5)
  - RESPIRATORY DISORDER [None]
  - ABORTION INDUCED [None]
  - OVARIAN HYPERSTIMULATION SYNDROME [None]
  - MATERNAL EXPOSURE DURING PREGNANCY [None]
  - RENAL IMPAIRMENT [None]
